FAERS Safety Report 22089110 (Version 2)
Quarter: 2023Q2

REPORT INFORMATION
  Report Type: Report from Study
  Country: US (occurrence: US)
  Receive Date: 20230313
  Receipt Date: 20230523
  Transmission Date: 20230721
  Serious: Yes (Hospitalization, Other)
  Sender: FDA-Public Use
  Company Number: US-ABBVIE-4335362

PATIENT
  Age: 34 Year
  Sex: Female

DRUGS (4)
  1. SKYRIZI [Suspect]
     Active Substance: RISANKIZUMAB-RZAA
     Indication: Crohn^s disease
     Route: 058
     Dates: start: 20230228, end: 20230228
  2. SKYRIZI [Suspect]
     Active Substance: RISANKIZUMAB-RZAA
     Indication: Crohn^s disease
     Dosage: WEEK 0
     Route: 058
     Dates: start: 20221205, end: 20221205
  3. SKYRIZI [Suspect]
     Active Substance: RISANKIZUMAB-RZAA
     Indication: Crohn^s disease
     Dosage: WEEK 4
     Route: 058
     Dates: start: 20230101, end: 20230101
  4. SKYRIZI [Suspect]
     Active Substance: RISANKIZUMAB-RZAA
     Indication: Crohn^s disease
     Dosage: WEEK 8
     Route: 058
     Dates: start: 20230131, end: 20230131

REACTIONS (7)
  - Parenteral nutrition [Unknown]
  - Post procedural urine leak [Unknown]
  - Chills [Recovered/Resolved]
  - Ileostomy [Unknown]
  - Procedural pain [Unknown]
  - Post procedural infection [Unknown]
  - Chills [Unknown]

NARRATIVE: CASE EVENT DATE: 20230101
